FAERS Safety Report 25637836 (Version 1)
Quarter: 2025Q3

REPORT INFORMATION
  Report Type: Report from Study
  Country: EU (occurrence: EU)
  Receive Date: 20250804
  Receipt Date: 20250804
  Transmission Date: 20251021
  Serious: Yes (Other)
  Sender: ROCHE
  Company Number: EU-ROCHE-3435784

PATIENT

DRUGS (2)
  1. RITUXIMAB [Suspect]
     Active Substance: RITUXIMAB
     Indication: Multiple sclerosis
     Route: 065
  2. OCRELIZUMAB [Suspect]
     Active Substance: OCRELIZUMAB
     Indication: Multiple sclerosis
     Route: 065

REACTIONS (9)
  - Off label use [Unknown]
  - Drug ineffective [Unknown]
  - Urinary tract infection [Unknown]
  - Thyroid neoplasm [Unknown]
  - Hypogammaglobulinaemia [Unknown]
  - Herpes zoster [Unknown]
  - Influenza [Unknown]
  - Gingivitis [Unknown]
  - Intervertebral discitis [Unknown]
